FAERS Safety Report 16857245 (Version 1)
Quarter: 2019Q3

REPORT INFORMATION
  Report Type: Spontaneous
  Country: DE (occurrence: DE)
  Receive Date: 20190926
  Receipt Date: 20190926
  Transmission Date: 20191005
  Serious: Yes (Life-Threatening, Hospitalization, Other)
  Sender: FDA-Public Use
  Company Number: DE-BAUSCH-BL-2019-055074

PATIENT
  Sex: Female

DRUGS (7)
  1. PEGFILGRASTIM [Suspect]
     Active Substance: PEGFILGRASTIM
     Indication: B-CELL LYMPHOMA
     Dosage: 6 MILLIGRAM, QD (ON DAY 4 FOR 71 DAYS)
     Route: 058
     Dates: start: 20150903, end: 20151112
  2. DOXORUBICINE [DOXORUBICIN] [Suspect]
     Active Substance: DOXORUBICIN
     Indication: B-CELL LYMPHOMA
     Route: 042
     Dates: start: 20150903, end: 20151112
  3. CYCLOPHOSPHAMIDE. [Suspect]
     Active Substance: CYCLOPHOSPHAMIDE
     Indication: B-CELL LYMPHOMA
     Dosage: 750 MILLIGRAM, Q2WK (ON DAY 4 FOR 71 DAYS)
     Route: 042
     Dates: start: 20150903, end: 20151112
  4. VINCRISTINE [Suspect]
     Active Substance: VINCRISTINE
     Indication: B-CELL LYMPHOMA
     Route: 042
     Dates: start: 20150903, end: 20151112
  5. PREDNISOLONE. [Suspect]
     Active Substance: PREDNISOLONE
     Indication: B-CELL LYMPHOMA
     Dosage: 100 MILLIGRAM (DAY 1 AND 5)
     Route: 048
     Dates: start: 20150903, end: 20151112
  6. ONDANSETRON [Concomitant]
     Active Substance: ONDANSETRON
     Indication: VOMITING
     Dosage: UNKNOWN
  7. RITUXIMAB. [Suspect]
     Active Substance: RITUXIMAB
     Indication: B-CELL LYMPHOMA
     Route: 042
     Dates: start: 20150903, end: 20151112

REACTIONS (1)
  - Pneumocystis jirovecii infection [Recovered/Resolved]

NARRATIVE: CASE EVENT DATE: 20151203
